FAERS Safety Report 23113176 (Version 2)
Quarter: 2023Q4

REPORT INFORMATION
  Report Type: Report from Study
  Country: CA (occurrence: CA)
  Receive Date: 20231027
  Receipt Date: 20231120
  Transmission Date: 20240110
  Serious: No
  Sender: FDA-Public Use
  Company Number: CA-JNJFOC-20231010382

PATIENT
  Age: 55 Year
  Sex: Female

DRUGS (1)
  1. SIMPONI [Suspect]
     Active Substance: GOLIMUMAB
     Indication: Product used for unknown indication
     Dosage: STRENGTH: 50.00 MG / 0.50 ML
     Route: 058

REACTIONS (3)
  - Device defective [Unknown]
  - Influenza like illness [Unknown]
  - Product dose omission issue [Unknown]

NARRATIVE: CASE EVENT DATE: 20231004
